FAERS Safety Report 9425926 (Version 3)
Quarter: 2014Q2

REPORT INFORMATION
  Report Type: Spontaneous
  Country: US (occurrence: US)
  Receive Date: 20130729
  Receipt Date: 20140627
  Transmission Date: 20141212
  Serious: Yes (Other)
  Sender: FDA-Public Use
  Company Number: US-B.I. PHARMACEUTICALS,INC./RIDGEFIELD-2013-BI-21894BP

PATIENT
  Age: 78 Year
  Sex: Female
  Weight: 63.59 kg

DRUGS (6)
  1. PRADAXA [Suspect]
     Indication: ATRIAL FIBRILLATION
     Dosage: 300 MG
     Route: 048
     Dates: start: 2010
  2. METOPROLOL [Concomitant]
     Indication: ATRIAL FIBRILLATION
     Dosage: 50 MG
     Route: 048
     Dates: start: 2013
  3. DILTIAZEM [Concomitant]
     Indication: HYPERTENSION
     Dosage: 240 MG
     Route: 048
  4. DILTIAZEM [Concomitant]
     Indication: HYPERTENSION
  5. TRIAMT HCTZ [Concomitant]
     Indication: FLUID RETENTION
     Dosage: STRENGTH: 37.5/25 MG, DAILY DOSE: 75/50 MG
     Route: 048
  6. TRIAMT HCTZ [Concomitant]
     Indication: HYPERTENSION
     Route: 048

REACTIONS (1)
  - Breast cancer [Recovered/Resolved]
